FAERS Safety Report 4798209-0 (Version None)
Quarter: 2005Q4

REPORT INFORMATION
  Report Type: 
  Country: None (occurrence: None)
  Receive Date: 20051011
  Receipt Date: 20050927
  Transmission Date: 20060501
  Serious: Yes (Other)
  Sender: FDA-Public Use
  Company Number: 2005135844

PATIENT
  Sex: Female
  Weight: 81.6475 kg

DRUGS (2)
  1. DETROL LA [Suspect]
     Indication: HYPERTONIC BLADDER
     Dosage: 4 MG (4 MG, 1 IN 1 D), ORAL
     Route: 048
     Dates: start: 20010101
  2. MULTIVITAMIN [Concomitant]

REACTIONS (8)
  - BLADDER REPAIR [None]
  - DRY MOUTH [None]
  - DYSSOMNIA [None]
  - FEELING HOT [None]
  - HYSTERECTOMY [None]
  - NIGHT SWEATS [None]
  - OSTEOPOROSIS [None]
  - POLLAKIURIA [None]
